FAERS Safety Report 23880915 (Version 3)
Quarter: 2024Q3

REPORT INFORMATION
  Report Type: Report from Study
  Country: TR (occurrence: TR)
  Receive Date: 20240521
  Receipt Date: 20240709
  Transmission Date: 20241017
  Serious: Yes (Other)
  Sender: JOHNSON AND JOHNSON
  Company Number: TR-JNJFOC-20240524452

PATIENT
  Sex: Female
  Weight: 60 kg

DRUGS (11)
  1. AMIVANTAMAB [Suspect]
     Active Substance: AMIVANTAMAB
     Indication: Non-small cell lung cancer
     Route: 042
     Dates: start: 20240507
  2. ACETAMINOPHEN [Concomitant]
     Active Substance: ACETAMINOPHEN
     Route: 042
  3. LYRICA [Concomitant]
     Active Substance: PREGABALIN
     Route: 048
  4. ACETYLCYSTEINE\ASCORBIC ACID [Concomitant]
     Active Substance: ACETYLCYSTEINE\ASCORBIC ACID
     Route: 048
  5. ESCITALOPRAM OXALATE [Concomitant]
     Active Substance: ESCITALOPRAM OXALATE
     Route: 048
  6. METHYLPREDNISOLONE [Concomitant]
     Active Substance: METHYLPREDNISOLONE
     Route: 042
  7. PANTOPRAZOLE [Concomitant]
     Active Substance: PANTOPRAZOLE
     Route: 042
  8. PHENIRAMINE MALEATE [Concomitant]
     Active Substance: PHENIRAMINE MALEATE
     Route: 042
  9. ENOXAPARIN SODIUM [Concomitant]
     Active Substance: ENOXAPARIN SODIUM
     Route: 058
     Dates: end: 20240506
  10. SULPIR [Concomitant]
     Route: 048
  11. MAGOSIT [Concomitant]
     Route: 065

REACTIONS (6)
  - Thrombocytopenia [Unknown]
  - Hypoxia [Recovered/Resolved]
  - Non-small cell lung cancer [Unknown]
  - Dyspnoea [Recovered/Resolved]
  - Agitation [Recovered/Resolved]
  - Oxygen saturation decreased [Unknown]

NARRATIVE: CASE EVENT DATE: 20240507
